FAERS Safety Report 10687276 (Version 2)
Quarter: 2015Q1

REPORT INFORMATION
  Report Type: Spontaneous
  Country: US (occurrence: None)
  Receive Date: 20141230
  Receipt Date: 20150112
  Transmission Date: 20150720
  Serious: Yes (Hospitalization)
  Sender: FDA-Public Use
  Company Number: FK201406476

PATIENT
  Sex: Female

DRUGS (6)
  1. OXALIPLATIN (OXALIPLATIN) [Concomitant]
     Active Substance: OXALIPLATIN
  2. PREMARIN (ESTROGENS CONJUGATED) [Concomitant]
  3. LEUCOVORIN (CALCIUM FOLINATE) [Concomitant]
     Active Substance: LEUCOVORIN
  4. ZOCOR [Concomitant]
     Active Substance: SIMVASTATIN
  5. FLUOROURACIL INJECTION, USP (FLUOROURACIL) (FLUOROURACIL) [Suspect]
     Active Substance: FLUOROURACIL
     Indication: COLON CANCER
     Dosage: 710 MG, IV PUSH
     Route: 042
     Dates: start: 20141215
  6. DEXAMETHASONE (DEXAMETHASONE) [Concomitant]
     Active Substance: DEXAMETHASONE

REACTIONS (4)
  - Chest pain [None]
  - Bronchospasm [None]
  - Rash pruritic [None]
  - Hypotension [None]

NARRATIVE: CASE EVENT DATE: 20141215
